FAERS Safety Report 7250666-6 (Version None)
Quarter: 2011Q1

REPORT INFORMATION
  Report Type: 
  Country: None (occurrence: None)
  Receive Date: 20110128
  Receipt Date: 20110125
  Transmission Date: 20110831
  Serious: Yes (Hospitalization)
  Sender: FDA-Public Use
  Company Number: GB-ROCHE-755839

PATIENT
  Sex: Male
  Weight: 86 kg

DRUGS (11)
  1. SITAGLIPTIN [Concomitant]
     Route: 048
     Dates: start: 20000101
  2. CAPECITABINE [Suspect]
     Dosage: FREQUENCY: UNKNOWN, LAST DOSE PRIOR TO SAE: 12 JANUARY 2011.
     Route: 065
     Dates: start: 20101201
  3. CISPLATIN [Suspect]
     Dosage: FREQUENCY: UNKNOWN, LAST DOSE PRIOR TO SAE: 12 JANUARY 2011.
     Route: 065
     Dates: start: 20101201
  4. ATORVASTATIN [Concomitant]
     Route: 048
     Dates: start: 20000101
  5. TELMISARTAN [Concomitant]
     Route: 048
     Dates: start: 20000101
  6. METFORMIN [Concomitant]
     Route: 048
     Dates: start: 20000101
  7. ASPIRIN [Concomitant]
     Route: 048
     Dates: start: 20000101
  8. AMLODIPINE [Concomitant]
     Route: 048
     Dates: start: 20000101
  9. INDAPAMIDE [Concomitant]
     Route: 048
     Dates: start: 20000101
  10. PERINDOPRIL [Concomitant]
     Route: 048
     Dates: start: 20000101
  11. EPIRUBICIN [Suspect]
     Dosage: FREQUENCY: UNKNOWN. LAST DOSE PRIOR TO SAE: 12 JANUARY 2011.
     Route: 065
     Dates: start: 20101201

REACTIONS (1)
  - GASTRITIS [None]
